FAERS Safety Report 14184882 (Version 10)
Quarter: 2020Q3

REPORT INFORMATION
  Report Type: Spontaneous
  Country: US (occurrence: US)
  Receive Date: 20171113
  Receipt Date: 20200721
  Transmission Date: 20201102
  Serious: No
  Sender: FDA-Public Use
  Company Number: US-ACTELION-A-NJ2017-162507

PATIENT
  Sex: Female
  Weight: 81.63 kg

DRUGS (4)
  1. AMLODIPINE [Concomitant]
     Active Substance: AMLODIPINE BESYLATE
  2. OPSUMIT [Suspect]
     Active Substance: MACITENTAN
     Dosage: UNK
     Route: 048
  3. LOSARTAN. [Concomitant]
     Active Substance: LOSARTAN
  4. OPSUMIT [Suspect]
     Active Substance: MACITENTAN
     Indication: PULMONARY ARTERIAL HYPERTENSION
     Dosage: 10 MG, QD
     Route: 048

REACTIONS (15)
  - Back pain [Unknown]
  - Limb discomfort [Unknown]
  - Arthralgia [Unknown]
  - Breast cyst [Unknown]
  - Cough [Unknown]
  - Sciatica [Unknown]
  - Blood uric acid increased [Unknown]
  - Respiratory tract infection [Unknown]
  - Fatigue [Unknown]
  - Bone pain [Unknown]
  - Atrial fibrillation [Unknown]
  - Dry mouth [Unknown]
  - Nasopharyngitis [Unknown]
  - Breast disorder [Unknown]
  - Insomnia [Unknown]
